FAERS Safety Report 7465758-6 (Version None)
Quarter: 2011Q2

REPORT INFORMATION
  Report Type: 
  Country: None (occurrence: None)
  Receive Date: 20110509
  Receipt Date: 20110421
  Transmission Date: 20111010
  Serious: No
  Sender: FDA-Public Use
  Company Number: US-B.I. PHARMACEUTICALS,INC./RIDGEFIELD-2011-BP-07750BP

PATIENT
  Sex: Female

DRUGS (9)
  1. VITAMIN D [Concomitant]
  2. METOPROLOL TARTRATE [Concomitant]
     Dosage: 200 MG
  3. LIPITOR [Concomitant]
  4. CALCIUM [Concomitant]
     Dosage: 1200 MG
  5. AMLODIPINE BESYLATE [Concomitant]
  6. DIOVAN HCT [Concomitant]
  7. LEVETIRACETAM [Concomitant]
     Dosage: 100 MG
     Route: 048
  8. ASPIRIN [Concomitant]
     Dosage: 81 MG
  9. PRADAXA [Suspect]
     Dosage: 300 MG
     Route: 048

REACTIONS (3)
  - TINNITUS [None]
  - CHEST DISCOMFORT [None]
  - FEELING ABNORMAL [None]
